FAERS Safety Report 4467242-0 (Version None)
Quarter: 2004Q4

REPORT INFORMATION
  Report Type: 
  Country: None (occurrence: None)
  Receive Date: 20041006
  Receipt Date: 20040930
  Transmission Date: 20050328
  Serious: Yes (Life-Threatening, Hospitalization)
  Sender: FDA-Public Use
  Company Number: US-MERCK-0410USA00055

PATIENT
  Age: 65 Year
  Sex: Male

DRUGS (9)
  1. NORVASC [Concomitant]
     Route: 065
  2. LIPITOR [Concomitant]
     Route: 065
  3. TRICOR [Concomitant]
     Route: 065
  4. LANTUS [Concomitant]
     Route: 065
  5. HUMALOG [Concomitant]
     Route: 065
  6. VIOXX [Suspect]
     Indication: ARTHRITIS
     Route: 048
     Dates: start: 20040215, end: 20040606
  7. SPIRONOLACTONE [Concomitant]
     Route: 065
  8. TERAZOSIN HYDROCHLORIDE [Concomitant]
     Route: 065
  9. VERAPAMIL [Concomitant]
     Route: 065

REACTIONS (1)
  - CEREBROVASCULAR ACCIDENT [None]
